FAERS Safety Report 13253833 (Version 1)
Quarter: 2017Q1

REPORT INFORMATION
  Report Type: Spontaneous
  Country: US (occurrence: US)
  Receive Date: 20170220
  Receipt Date: 20170220
  Transmission Date: 20170428
  Serious: No
  Sender: FDA-Public Use
  Company Number: US-TEVA-727181ACC

PATIENT
  Age: 40 Year
  Sex: Female

DRUGS (4)
  1. CHANTIX [Concomitant]
     Active Substance: VARENICLINE TARTRATE
  2. MULTAQ [Concomitant]
     Active Substance: DRONEDARONE
  3. COPAXONE [Suspect]
     Active Substance: GLATIRAMER ACETATE
     Indication: MULTIPLE SCLEROSIS
     Route: 058
     Dates: start: 20160914
  4. AMITRIPTYLIN [Concomitant]
     Active Substance: AMITRIPTYLINE

REACTIONS (2)
  - Feeling abnormal [Recovering/Resolving]
  - Drug dose omission [Unknown]

NARRATIVE: CASE EVENT DATE: 2016
